FAERS Safety Report 9513166 (Version 5)
Quarter: 2014Q2

REPORT INFORMATION
  Report Type: Spontaneous
  Country: US (occurrence: US)
  Receive Date: 20130910
  Receipt Date: 20140513
  Transmission Date: 20141212
  Serious: Yes (Hospitalization)
  Sender: FDA-Public Use
  Company Number: US-PFIZER INC-2013258511

PATIENT
  Age: 53 Year
  Sex: Female
  Weight: 77.1 kg

DRUGS (5)
  1. LYRICA [Suspect]
     Indication: NEURALGIA
     Dosage: 75 MG, 3X/DAY
     Dates: start: 201303, end: 201309
  2. LYRICA [Suspect]
     Indication: FIBROMYALGIA
  3. PRISTIQ [Suspect]
     Dosage: UNK
  4. ACCUPRIL [Suspect]
     Dosage: UNK, 1X/DAY
  5. METOPROLOL [Concomitant]
     Indication: HYPERTENSION
     Dosage: UNK, 2X/DAY

REACTIONS (3)
  - Pain [Not Recovered/Not Resolved]
  - Malaise [Not Recovered/Not Resolved]
  - Pain in extremity [Not Recovered/Not Resolved]
